FAERS Safety Report 25437721 (Version 1)
Quarter: 2025Q2

REPORT INFORMATION
  Report Type: Spontaneous
  Country: CN (occurrence: CN)
  Receive Date: 20250616
  Receipt Date: 20250616
  Transmission Date: 20250716
  Serious: Yes (Hospitalization)
  Sender: JIANGSU HANSOH PHARMACEUTICAL
  Company Number: CN-Jiangsu Hansoh Pharmaceutical Co., Ltd-2178749

PATIENT
  Age: 72 Year
  Sex: Male
  Weight: 47.8 kg

DRUGS (4)
  1. AZACITIDINE [Suspect]
     Active Substance: AZACITIDINE
     Indication: Neoplasm malignant
     Dates: start: 20250516, end: 20250516
  2. THALIDOMIDE [Suspect]
     Active Substance: THALIDOMIDE
     Dates: start: 20250516, end: 20250516
  3. ETOPOSIDE [Suspect]
     Active Substance: ETOPOSIDE
     Dates: start: 20250516, end: 20250516
  4. RITUXIMAB [Suspect]
     Active Substance: RITUXIMAB
     Dates: start: 20250522, end: 20250522

REACTIONS (1)
  - Ventricular tachycardia [Recovering/Resolving]

NARRATIVE: CASE EVENT DATE: 20250523
